FAERS Safety Report 13987892 (Version 3)
Quarter: 2017Q4

REPORT INFORMATION
  Report Type: Spontaneous
  Country: US (occurrence: US)
  Receive Date: 20170919
  Receipt Date: 20171227
  Transmission Date: 20180321
  Serious: No
  Sender: FDA-Public Use
  Company Number: US-PFIZER INC-2017400321

PATIENT
  Age: 59 Year
  Sex: Female
  Weight: 63.5 kg

DRUGS (1)
  1. ARTHROTEC [Suspect]
     Active Substance: DICLOFENAC SODIUM\MISOPROSTOL
     Indication: ARTHRITIS
     Dosage: 1 DF, DAILY (ONE 75 MG-200 MCG TABLET DAILY)

REACTIONS (3)
  - Intentional product misuse [Unknown]
  - Drug dose omission [Unknown]
  - Incorrect drug administration duration [Unknown]
